FAERS Safety Report 4603921-X (Version None)
Quarter: 2005Q1

REPORT INFORMATION
  Report Type: 
  Country: None (occurrence: None)
  Receive Date: 20050308
  Receipt Date: 20050223
  Transmission Date: 20050727
  Serious: Yes (Other)
  Sender: FDA-Public Use
  Company Number: 2005036646

PATIENT
  Age: 42 Year
  Weight: 58.0604 kg

DRUGS (3)
  1. ZOLOFT [Suspect]
     Indication: POSTPARTUM DEPRESSION
     Dates: start: 20010901
  2. ALL OTHER THERAPEUTIC PRODUCTS [Suspect]
     Indication: BREAST CANCER
     Dates: start: 20030101, end: 20040101
  3. TRASTUZUMAB (TRASTUZUMAB) [Suspect]
     Indication: BREAST CANCER
     Dates: start: 20040501

REACTIONS (10)
  - APATHY [None]
  - BREAST CANCER FEMALE [None]
  - CONDITION AGGRAVATED [None]
  - DEPRESSION [None]
  - DISEASE RECURRENCE [None]
  - DISTURBANCE IN ATTENTION [None]
  - FATIGUE [None]
  - FEELING ABNORMAL [None]
  - MENOPAUSE [None]
  - SINUSITIS [None]
